FAERS Safety Report 5327404-7 (Version None)
Quarter: 2007Q2

REPORT INFORMATION
  Report Type: 
  Country: None (occurrence: None)
  Receive Date: 20070517
  Receipt Date: 20070508
  Transmission Date: 20071010
  Serious: Yes (Other)
  Sender: FDA-Public Use
  Company Number: GBWYE604608MAY07

PATIENT
  Sex: Male

DRUGS (3)
  1. EFFEXOR XR [Suspect]
     Dosage: 225MG, FREQUENCY UNKNOWN
     Route: 048
  2. LYRICA [Interacting]
     Dosage: UNKNOWN (LOW DOSE)
  3. MORPHINE [Concomitant]
     Dosage: UNKNOWN

REACTIONS (2)
  - DRUG INTERACTION [None]
  - SEROTONIN SYNDROME [None]
